FAERS Safety Report 13436395 (Version 2)
Quarter: 2017Q2

REPORT INFORMATION
  Report Type: Spontaneous
  Country: DK (occurrence: DK)
  Receive Date: 20170413
  Receipt Date: 20170622
  Transmission Date: 20170830
  Serious: Yes (Death)
  Sender: FDA-Public Use
  Company Number: DK-PFIZER INC-2017158647

PATIENT
  Age: 56 Year
  Sex: Female

DRUGS (7)
  1. DELEPSINE RETARD [Suspect]
     Active Substance: VALPROATE SODIUM
     Indication: ANXIETY
     Dosage: 600 MG, DAILY
     Route: 048
     Dates: start: 20141007
  2. OXAPAX [Suspect]
     Active Substance: OXAZEPAM
     Dosage: 15 MG, AS NEEDED
     Route: 048
     Dates: start: 20130419
  3. COMBAR [Suspect]
     Active Substance: MIRTAZAPINE
     Dosage: 30 MG, DAILY
     Route: 048
     Dates: start: 20130813
  4. ZIPRASIDONE HCL [Suspect]
     Active Substance: ZIPRASIDONE HYDROCHLORIDE
     Dosage: 20 MG, DAILY
     Route: 048
     Dates: start: 20140917
  5. VENLAFAXINE HCL [Suspect]
     Active Substance: VENLAFAXINE HYDROCHLORIDE
     Dosage: 150 MG, DAILY
     Route: 048
     Dates: start: 20110920
  6. AKINETON [Suspect]
     Active Substance: BIPERIDEN HYDROCHLORIDE
     Indication: EXTRAPYRAMIDAL DISORDER
     Dosage: 4 MG, DAILY
     Route: 048
     Dates: start: 20140903
  7. BROMAM [Suspect]
     Active Substance: BROMAZEPAM
     Dosage: UNK
     Route: 048

REACTIONS (1)
  - Toxicity to various agents [Fatal]

NARRATIVE: CASE EVENT DATE: 20141018
